FAERS Safety Report 8418415-3 (Version None)
Quarter: 2012Q2

REPORT INFORMATION
  Report Type: 
  Country: None (occurrence: None)
  Receive Date: 20120607
  Receipt Date: 20120530
  Transmission Date: 20120825
  Serious: Yes (Other)
  Sender: FDA-Public Use
  Company Number: US-PFIZER INC-2012017633

PATIENT
  Sex: Female

DRUGS (1)
  1. CHANTIX [Suspect]
     Indication: SMOKING CESSATION THERAPY
     Dosage: 1 MG, 2X/DAY
     Route: 048
     Dates: start: 20120115, end: 20120327

REACTIONS (10)
  - VIOLENCE-RELATED SYMPTOM [None]
  - INSOMNIA [None]
  - HOT FLUSH [None]
  - WITHDRAWAL SYNDROME [None]
  - FEELING ABNORMAL [None]
  - FEELING JITTERY [None]
  - DRUG WITHDRAWAL SYNDROME [None]
  - DEPRESSED MOOD [None]
  - IRRITABILITY [None]
  - CRYING [None]
